FAERS Safety Report 5352338-1 (Version None)
Quarter: 2007Q2

REPORT INFORMATION
  Report Type: 
  Country: None (occurrence: None)
  Receive Date: 20070607
  Receipt Date: 20070607
  Transmission Date: 20071010
  Serious: Yes (Life-Threatening)
  Sender: FDA-Public Use
  Company Number: None

PATIENT
  Age: 33 Year
  Sex: Female

DRUGS (11)
  1. HEPARIN [Suspect]
     Indication: THROMBOSIS PROPHYLAXIS
     Dosage: 5 TO 7 UNITS/KG/HOUR CONTINUOUS IV DRIP
     Route: 041
     Dates: start: 20061124, end: 20061125
  2. MYCOPHENOLATE MOFETIL [Concomitant]
  3. TACROLIMUS [Concomitant]
  4. FLUCONAZOLE [Concomitant]
  5. PIPERACILLIN AND TAZOBACTAM [Concomitant]
  6. METRONIDAZOLE [Concomitant]
  7. PANTOPRAZOLE SODIUM [Concomitant]
  8. OCTREOTIDE ACETATE [Concomitant]
  9. METHYLPREDNISOLONE 16MG TAB [Concomitant]
  10. CLOTRIMAZOLE [Concomitant]
  11. NYSTATIN [Concomitant]

REACTIONS (1)
  - RETROPERITONEAL HAEMORRHAGE [None]
